FAERS Safety Report 13385493 (Version 1)
Quarter: 2017Q1

REPORT INFORMATION
  Report Type: Other
  Country: GB (occurrence: GB)
  Receive Date: 20170330
  Receipt Date: 20170330
  Transmission Date: 20170429
  Serious: Yes (Life-Threatening, Other)
  Sender: FDA-Public Use
  Company Number: GB-INTERNATIONAL MEDICATION SYSTEMS, LIMITED-1064808

PATIENT
  Age: 25 Year
  Sex: Female
  Weight: 50 kg

DRUGS (9)
  1. CALCIUM CHLORIDE. [Suspect]
     Active Substance: CALCIUM CHLORIDE
  2. SODIUM BICARBONATE 8.4% [Suspect]
     Active Substance: SODIUM BICARBONATE
  3. GLUCOSE 50% [Concomitant]
     Active Substance: DEXTROSE
  4. EPINEPHRINE. [Suspect]
     Active Substance: EPINEPHRINE
  5. EPHEDRINE. [Suspect]
     Active Substance: EPHEDRINE
  6. EPINEPHRINE. [Suspect]
     Active Substance: EPINEPHRINE
  7. METARAMINOL [Suspect]
     Active Substance: METARAMINOL
  8. ACTRAPID [Concomitant]
     Active Substance: INSULIN HUMAN
  9. GLUCAGON. [Suspect]
     Active Substance: GLUCAGON

REACTIONS (8)
  - Bradycardia [None]
  - Drug ineffective [Unknown]
  - Cardiogenic shock [None]
  - Apnoea [None]
  - Respiratory arrest [None]
  - Blood pressure decreased [None]
  - Pupil fixed [None]
  - Hypotension [None]
